FAERS Safety Report 17684971 (Version 1)
Quarter: 2020Q2

REPORT INFORMATION
  Report Type: Report from Study
  Country: US (occurrence: US)
  Receive Date: 20200420
  Receipt Date: 20200420
  Transmission Date: 20200714
  Serious: Yes (Other)
  Sender: FDA-Public Use
  Company Number: NVSC2020US103711

PATIENT
  Sex: Female

DRUGS (1)
  1. GILENYA [Suspect]
     Active Substance: FINGOLIMOD HYDROCHLORIDE
     Indication: MULTIPLE SCLEROSIS
     Dosage: 0.5 MG, QD
     Route: 048
     Dates: start: 20191105

REACTIONS (5)
  - Headache [Recovered/Resolved]
  - Tachycardia [Recovering/Resolving]
  - Urinary tract infection [Recovered/Resolved]
  - Hypoxia [Unknown]
  - Ocular hyperaemia [Unknown]
